FAERS Safety Report 23182531 (Version 1)
Quarter: 2023Q4

REPORT INFORMATION
  Report Type: Spontaneous
  Country: DE (occurrence: DE)
  Receive Date: 20231114
  Receipt Date: 20231114
  Transmission Date: 20240109
  Serious: Yes (Other)
  Sender: FDA-Public Use
  Company Number: DE-NAPPMUNDI-GBR-2023-0112148

PATIENT
  Sex: Female

DRUGS (1)
  1. NORSPAN [Suspect]
     Active Substance: BUPRENORPHINE
     Indication: Analgesic therapy
     Dosage: 20 MICROGRAM, WEEKLY
     Route: 062

REACTIONS (4)
  - Coma [Unknown]
  - Drug hypersensitivity [Unknown]
  - Product adhesion issue [Unknown]
  - Wrong technique in product usage process [Unknown]
